FAERS Safety Report 10081461 (Version 1)
Quarter: 2014Q2

REPORT INFORMATION
  Report Type: Spontaneous
  Country: US (occurrence: US)
  Receive Date: 20140416
  Receipt Date: 20140416
  Transmission Date: 20141212
  Serious: Yes (Death)
  Sender: FDA-Public Use
  Company Number: US-PFIZER INC-2014102345

PATIENT
  Age: 5 Year
  Sex: Female

DRUGS (4)
  1. DOXYCYCLINE HYCLATE [Suspect]
     Indication: ROCKY MOUNTAIN SPOTTED FEVER
     Dosage: UNK
  2. CEFTRIAXONE [Suspect]
     Indication: ROCKY MOUNTAIN SPOTTED FEVER
     Dosage: UNK
  3. VANCOMYCIN HCL [Suspect]
     Indication: ROCKY MOUNTAIN SPOTTED FEVER
     Dosage: UNK
  4. CEPHALEXIN [Concomitant]
     Indication: PHARYNGITIS
     Dosage: UNK

REACTIONS (1)
  - Therapeutic response decreased [Fatal]
